FAERS Safety Report 25897968 (Version 2)
Quarter: 2025Q4

REPORT INFORMATION
  Report Type: Spontaneous
  Country: US (occurrence: US)
  Receive Date: 20251008
  Receipt Date: 20251110
  Transmission Date: 20260117
  Serious: No
  Sender: Haleon PLC
  Company Number: US-HALEON-2266085

PATIENT

DRUGS (1)
  1. NICORETTE FRUIT CHILL [Suspect]
     Active Substance: NICOTINE
     Indication: Smoking cessation therapy
     Route: 048

REACTIONS (3)
  - Drug effect less than expected [Unknown]
  - Product use complaint [Unknown]
  - Product physical issue [Unknown]
